FAERS Safety Report 18764842 (Version 3)
Quarter: 2021Q3

REPORT INFORMATION
  Report Type: Spontaneous
  Country: GB (occurrence: GB)
  Receive Date: 20210121
  Receipt Date: 20210826
  Transmission Date: 20211014
  Serious: Yes (Other)
  Sender: FDA-Public Use
  Company Number: GB-AUROBINDO-AUR-APL-2021-002080

PATIENT
  Sex: Female

DRUGS (9)
  1. DESCOVY [Suspect]
     Active Substance: EMTRICITABINE\TENOFOVIR ALAFENAMIDE FUMARATE
     Indication: PRODUCT USED FOR UNKNOWN INDICATION
     Dosage: 200/10
     Route: 065
  2. EMTRICITABINE [Suspect]
     Active Substance: EMTRICITABINE
     Indication: PRODUCT USED FOR UNKNOWN INDICATION
     Dosage: 1 DOSAGE FORM, ONCE A DAY (1 DOSAGE FORM, QD, 200/10)
     Route: 065
  3. ACICLOVIR [Suspect]
     Active Substance: ACYCLOVIR
     Dosage: 400 MILLIGRAM, TWO TIMES A DAY (400)
     Route: 065
  4. RITONAVIR. [Suspect]
     Active Substance: RITONAVIR
     Indication: PRODUCT USED FOR UNKNOWN INDICATION
     Dosage: 100 MILLIGRAM, ONCE A DAY (100 MG, QD)
     Route: 048
  5. DARUNAVIR [Suspect]
     Active Substance: DARUNAVIR
     Indication: PRODUCT USED FOR UNKNOWN INDICATION
     Dosage: 1 DOSAGE FORM, ONCE A DAY
     Route: 065
  6. ACICLOVIR [Suspect]
     Active Substance: ACYCLOVIR
     Indication: PRODUCT USED FOR UNKNOWN INDICATION
     Dosage: 2 DOSAGE FORM, ONCE A DAY
     Route: 065
  7. ACICLOVIR [Suspect]
     Active Substance: ACYCLOVIR
     Dosage: 400 MILLIGRAM, TWO TIMES A DAY(400 MG, BID)
     Route: 048
  8. PREZISTA [Suspect]
     Active Substance: DARUNAVIR ETHANOLATE
     Indication: PRODUCT USED FOR UNKNOWN INDICATION
     Dosage: 800 MILLIGRAM, ONCE A DAY (UNK, QD)
     Route: 065
  9. TENOFOVIR ALAFENAMIDE [Suspect]
     Active Substance: TENOFOVIR ALAFENAMIDE
     Indication: PRODUCT USED FOR UNKNOWN INDICATION
     Dosage: 1 DOSAGE FORM, ONCE A DAY
     Route: 065

REACTIONS (6)
  - Malaise [Unknown]
  - Diarrhoea [Unknown]
  - Gastric disorder [Unknown]
  - Depressed mood [Unknown]
  - Emotional distress [Unknown]
  - Suicidal ideation [Unknown]
